FAERS Safety Report 15665507 (Version 2)
Quarter: 2018Q4

REPORT INFORMATION
  Report Type: Report from Study
  Country: BE (occurrence: BE)
  Receive Date: 20181128
  Receipt Date: 20181214
  Transmission Date: 20190205
  Serious: Yes (Other)
  Sender: FDA-Public Use
  Company Number: BE-JNJFOC-20181131810

PATIENT
  Age: 77 Year
  Sex: Male
  Weight: 75 kg

DRUGS (13)
  1. CIPROFIBRATE [Concomitant]
     Active Substance: CIPROFIBRATE
     Route: 065
  2. CALCIUM VITAMIN D3 [Concomitant]
     Route: 065
  3. BISOPROLOL [Concomitant]
     Active Substance: BISOPROLOL
     Route: 065
  4. MAGNESIUM [Concomitant]
     Active Substance: MAGNESIUM
     Route: 065
  5. OMEPRAZOLE. [Concomitant]
     Active Substance: OMEPRAZOLE
     Route: 065
  6. VITAMINAS B1-B6-B12 [Concomitant]
     Route: 065
  7. ACLASTA [Concomitant]
     Active Substance: ZOLEDRONIC ACID
     Route: 065
  8. IBRUTINIB [Suspect]
     Active Substance: IBRUTINIB
     Indication: MANTLE CELL LYMPHOMA
     Route: 048
     Dates: start: 20180803, end: 20181121
  9. LORMETAZEPAM [Concomitant]
     Active Substance: LORMETAZEPAM
     Route: 065
  10. LYRICA [Concomitant]
     Active Substance: PREGABALIN
     Route: 065
     Dates: start: 20181121, end: 20181128
  11. LYRICA [Concomitant]
     Active Substance: PREGABALIN
     Route: 065
     Dates: start: 20181129, end: 20181205
  12. QUININE SULPHATE [Concomitant]
     Active Substance: QUININE SULFATE
     Route: 065
  13. LIXIANA [Concomitant]
     Active Substance: EDOXABAN TOSYLATE
     Route: 065

REACTIONS (1)
  - Chronic inflammatory demyelinating polyradiculoneuropathy [Recovering/Resolving]

NARRATIVE: CASE EVENT DATE: 20180816
